FAERS Safety Report 15325829 (Version 1)
Quarter: 2018Q3

REPORT INFORMATION
  Report Type: Spontaneous
  Country: US (occurrence: US)
  Receive Date: 20180823
  Receipt Date: 20180823
  Transmission Date: 20181010
  Serious: Yes (Life-Threatening, Disabling, Other)
  Sender: FDA-Public Use
  Company Number: None

PATIENT
  Sex: Female

DRUGS (1)
  1. RISPERDAL [Suspect]
     Active Substance: RISPERIDONE
     Indication: DRUG THERAPY
     Dosage: ?          QUANTITY:1 INJECTION(S);?

REACTIONS (4)
  - Dyspnoea [None]
  - Abnormal weight gain [None]
  - Abdominal distension [None]
  - Induration [None]

NARRATIVE: CASE EVENT DATE: 20060505
